FAERS Safety Report 24764659 (Version 1)
Quarter: 2024Q4

REPORT INFORMATION
  Report Type: Spontaneous
  Country: CN (occurrence: CN)
  Receive Date: 20241223
  Receipt Date: 20241223
  Transmission Date: 20250114
  Serious: Yes (Other)
  Sender: SANDOZ
  Company Number: CN-002147023-NVSC2024CN240955

PATIENT
  Age: 21 Year
  Sex: Male

DRUGS (3)
  1. FLUOROMETHOLONE [Suspect]
     Active Substance: FLUOROMETHOLONE
     Indication: Symptomatic treatment
     Dosage: 2 DROP, QD
     Route: 041
     Dates: start: 20241016, end: 20241028
  2. TOBRADEX [Suspect]
     Active Substance: DEXAMETHASONE\TOBRAMYCIN
     Indication: Symptomatic treatment
     Dosage: 0.040 ML, QID
     Route: 047
     Dates: start: 20241016, end: 20241028
  3. Hypromellose 2910,dextran 70 and glycerol [Concomitant]
     Indication: Symptomatic treatment
     Dosage: 0.04 ML, QID
     Route: 047
     Dates: start: 20241016, end: 20241031

REACTIONS (2)
  - Ocular hypertension [Recovered/Resolved]
  - Visual acuity reduced [Unknown]

NARRATIVE: CASE EVENT DATE: 20241024
